FAERS Safety Report 6655718-7 (Version None)
Quarter: 2010Q1

REPORT INFORMATION
  Report Type: 
  Country: None (occurrence: None)
  Receive Date: 20100326
  Receipt Date: 20100326
  Transmission Date: 20100710
  Serious: Yes (Hospitalization)
  Sender: FDA-Public Use
  Company Number: None

PATIENT
  Age: 48 Year
  Sex: Male
  Weight: 86 kg

DRUGS (1)
  1. QUETIAPINE [Suspect]
     Indication: POST-TRAUMATIC STRESS DISORDER
     Dosage: 200 MG BID PO
     Route: 048
     Dates: start: 20061115, end: 20100324

REACTIONS (3)
  - DIABETES MELLITUS [None]
  - HYPERGLYCAEMIA [None]
  - HYPEROSMOLAR STATE [None]
